FAERS Safety Report 25243525 (Version 2)
Quarter: 2025Q2

REPORT INFORMATION
  Report Type: Spontaneous
  Country: US (occurrence: US)
  Receive Date: 20250428
  Receipt Date: 20250509
  Transmission Date: 20250716
  Serious: Yes (Life-Threatening, Hospitalization)
  Sender: TEVA
  Company Number: US-TEVA-VS-3324409

PATIENT
  Age: 41 Year
  Sex: Male

DRUGS (1)
  1. LIDOCAINE [Suspect]
     Active Substance: LIDOCAINE
     Indication: Skin wound
     Route: 061

REACTIONS (8)
  - Toxicity to various agents [Unknown]
  - Bradycardia [Recovering/Resolving]
  - Postictal state [Recovering/Resolving]
  - Tachypnoea [Recovering/Resolving]
  - Intentional product misuse [Unknown]
  - Status epilepticus [Recovering/Resolving]
  - Loss of consciousness [Recovering/Resolving]
  - Tachycardia [Recovering/Resolving]
